FAERS Safety Report 9479546 (Version 2)
Quarter: 2014Q1

REPORT INFORMATION
  Report Type: Spontaneous
  Country: US (occurrence: US)
  Receive Date: 20130827
  Receipt Date: 20140102
  Transmission Date: 20141002
  Serious: Yes (Death)
  Sender: FDA-Public Use
  Company Number: US-UCBSA-095896

PATIENT
  Sex: Female
  Weight: 33.11 kg

DRUGS (1)
  1. CIMZIA [Suspect]
     Indication: CROHN^S DISEASE
     Route: 058
     Dates: start: 201212, end: 201304

REACTIONS (2)
  - Crohn^s disease [Fatal]
  - Drug ineffective [Recovered/Resolved]
